FAERS Safety Report 22638458 (Version 1)
Quarter: 2023Q2

REPORT INFORMATION
  Report Type: Spontaneous
  Country: GB (occurrence: None)
  Receive Date: 20230626
  Receipt Date: 20230626
  Transmission Date: 20230722
  Serious: Yes (Life-Threatening, Hospitalization)
  Sender: FDA-Public Use
  Company Number: 2023A143521

PATIENT
  Age: 61 Year

DRUGS (4)
  1. TICAGRELOR [Suspect]
     Active Substance: TICAGRELOR
     Dates: start: 202304
  2. ASPIRIN [Suspect]
     Active Substance: ASPIRIN
     Dosage: ??042023
  3. COLCHICINE [Suspect]
     Active Substance: COLCHICINE
     Dates: start: 202304
  4. IBUPROFEN [Suspect]
     Active Substance: IBUPROFEN
     Dates: start: 20230505

REACTIONS (1)
  - Gastrointestinal haemorrhage [Recovered/Resolved]
